FAERS Safety Report 17548856 (Version 1)
Quarter: 2020Q1

REPORT INFORMATION
  Report Type: Spontaneous
  Country: CN (occurrence: CN)
  Receive Date: 20200317
  Receipt Date: 20200317
  Transmission Date: 20200409
  Serious: Yes (Other)
  Sender: FDA-Public Use
  Company Number: CN-ROCHE-2565141

PATIENT
  Age: 29 Year
  Sex: Male

DRUGS (9)
  1. MABTHERA [Suspect]
     Active Substance: RITUXIMAB
     Indication: HIGH-GRADE B-CELL LYMPHOMA
     Route: 065
     Dates: start: 20190701
  2. CYCLOPHOSPHAMIDE. [Concomitant]
     Active Substance: CYCLOPHOSPHAMIDE
     Indication: HIGH-GRADE B-CELL LYMPHOMA
     Route: 065
     Dates: start: 20190701
  3. DECITABINE. [Concomitant]
     Active Substance: DECITABINE
     Indication: HIGH-GRADE B-CELL LYMPHOMA
     Route: 065
     Dates: start: 20190701
  4. DEXAMETHASONE. [Concomitant]
     Active Substance: DEXAMETHASONE
     Indication: HIGH-GRADE B-CELL LYMPHOMA
     Route: 065
     Dates: start: 20190701
  5. EPIRUBICIN [Concomitant]
     Active Substance: EPIRUBICIN
     Indication: HIGH-GRADE B-CELL LYMPHOMA
     Route: 065
     Dates: start: 20190701
  6. VINDESINE [Concomitant]
     Active Substance: VINDESINE
     Indication: HIGH-GRADE B-CELL LYMPHOMA
     Route: 065
     Dates: start: 20190701
  7. DECITABINE. [Concomitant]
     Active Substance: DECITABINE
     Route: 065
     Dates: start: 20191119
  8. CHIDAMIDE [Concomitant]
     Active Substance: TUCIDINOSTAT
     Indication: HIGH-GRADE B-CELL LYMPHOMA
     Route: 065
     Dates: start: 20191119
  9. METHOTREXATE. [Concomitant]
     Active Substance: METHOTREXATE
     Indication: HIGH-GRADE B-CELL LYMPHOMA
     Route: 065
     Dates: start: 20190701

REACTIONS (9)
  - Anal ulcer [Unknown]
  - Pleural effusion [Unknown]
  - Bone marrow failure [Unknown]
  - Pyrexia [Unknown]
  - Pneumonia [Unknown]
  - Anal incontinence [Unknown]
  - Pneumonitis [Unknown]
  - Lung hypoinflation [Unknown]
  - Intervertebral disc protrusion [Unknown]

NARRATIVE: CASE EVENT DATE: 20191022
